FAERS Safety Report 5378578-3 (Version None)
Quarter: 2007Q3

REPORT INFORMATION
  Report Type: 
  Country: None (occurrence: None)
  Receive Date: 20070702
  Receipt Date: 20070618
  Transmission Date: 20080115
  Serious: Yes (Hospitalization)
  Sender: FDA-Public Use
  Company Number: 2007VX001674

PATIENT
  Age: 38 Year
  Sex: Male
  Weight: 70 kg

DRUGS (1)
  1. DALMADROM [Suspect]
     Dosage: 19 DF; X1

REACTIONS (3)
  - BRADYCARDIA [None]
  - DRUG ABUSER [None]
  - INCORRECT DOSE ADMINISTERED [None]
